FAERS Safety Report 4339360-9 (Version None)
Quarter: 2004Q2

REPORT INFORMATION
  Report Type: 
  Country: None (occurrence: None)
  Receive Date: 20040412
  Receipt Date: 20040325
  Transmission Date: 20050107
  Serious: Yes (Hospitalization)
  Sender: FDA-Public Use
  Company Number: 200401121

PATIENT
  Age: 89 Year
  Sex: Female
  Weight: 62.5964 kg

DRUGS (14)
  1. ALPHAGAN P [Suspect]
     Indication: GLAUCOMA
     Dosage: 2 DROP TID EYE
     Route: 047
     Dates: start: 20030922, end: 20031201
  2. BRIMONIDINE TARTRATE [Suspect]
     Indication: GLAUCOMA
     Dosage: 2 DROP TID EYE
     Route: 047
  3. COSOPT [Concomitant]
  4. LUMIGAN [Concomitant]
  5. COUMADIN [Concomitant]
  6. COZAAR [Concomitant]
  7. NORVASC [Concomitant]
  8. HYDROCHLOROTHIAZIDE [Concomitant]
  9. TOPROL-XL [Concomitant]
  10. IMDUR [Concomitant]
  11. POTASSIUM [Concomitant]
  12. FLEXAMIN [Concomitant]
  13. CALCIUM WITH VITAMIN D [Concomitant]
  14. MULTIVITAMIN [Concomitant]

REACTIONS (10)
  - ASTHENIA [None]
  - BLOOD PRESSURE ABNORMAL [None]
  - BLOOD PRESSURE DECREASED [None]
  - EYE REDNESS [None]
  - FATIGUE [None]
  - HYPERSENSITIVITY [None]
  - LOSS OF CONSCIOUSNESS [None]
  - NAUSEA [None]
  - RHINORRHOEA [None]
  - SYNCOPE [None]
